FAERS Safety Report 8069846-5 (Version None)
Quarter: 2012Q1

REPORT INFORMATION
  Report Type: 
  Country: None (occurrence: None)
  Receive Date: 20120125
  Receipt Date: 20120125
  Transmission Date: 20120608
  Serious: Yes (Life-Threatening, Hospitalization, Disabling, Other)
  Sender: FDA-Public Use
  Company Number: None

PATIENT
  Age: 62 Year
  Sex: Female
  Weight: 68.038 kg

DRUGS (1)
  1. BACTRIM [Suspect]
     Indication: URINARY TRACT INFECTION
     Dosage: 1 PILL
     Route: 048
     Dates: start: 20110801, end: 20111006

REACTIONS (7)
  - TOXIC EPIDERMAL NECROLYSIS [None]
  - FATIGUE [None]
  - ONYCHOMADESIS [None]
  - BLOOD PRESSURE DECREASED [None]
  - STEVENS-JOHNSON SYNDROME [None]
  - ALOPECIA [None]
  - INFLUENZA [None]
